FAERS Safety Report 4628292-4 (Version None)
Quarter: 2005Q2

REPORT INFORMATION
  Report Type: 
  Country: None (occurrence: None)
  Receive Date: 20050401
  Receipt Date: 20050318
  Transmission Date: 20051028
  Serious: Yes (Death)
  Sender: FDA-Public Use
  Company Number: 0500015EN0020P

PATIENT
  Age: 7 Year
  Sex: Female
  Weight: 22 kg

DRUGS (5)
  1. ONCASPAR [Suspect]
     Indication: ACUTE LYMPHOCYTIC LEUKAEMIA
  2. VINCRISTINE [Suspect]
     Indication: ACUTE LYMPHOCYTIC LEUKAEMIA
  3. CYCLOPHOSPHAMIDE [Suspect]
     Indication: ACUTE LYMPHOCYTIC LEUKAEMIA
  4. MERCAPTOPURINE [Suspect]
     Indication: ACUTE LYMPHOCYTIC LEUKAEMIA
  5. CYTARABINE [Suspect]
     Indication: ACUTE LYMPHOCYTIC LEUKAEMIA

REACTIONS (11)
  - BACTERIAL INFECTION [None]
  - CARDIOPULMONARY FAILURE [None]
  - CEREBRAL HAEMORRHAGE [None]
  - CHEST TUBE INSERTION [None]
  - EYE PAIN [None]
  - FEBRILE NEUTROPENIA [None]
  - HEADACHE [None]
  - HYPOTENSION [None]
  - PNEUMOTHORAX [None]
  - POST PROCEDURAL COMPLICATION [None]
  - ZYGOMYCOSIS [None]
